FAERS Safety Report 10290776 (Version 3)
Quarter: 2014Q4

REPORT INFORMATION
  Report Type: Spontaneous
  Country: JP (occurrence: None)
  Receive Date: 20140708
  Receipt Date: 20141029
  Transmission Date: 20150528
  Serious: Yes (Death, Hospitalization, Other)
  Sender: FDA-Public Use
  Company Number: 2014MPI00782

PATIENT
  Age: 64 Year
  Sex: Male
  Weight: 48 kg

DRUGS (3)
  1. ADCETRIS [Suspect]
     Active Substance: BRENTUXIMAB VEDOTIN
     Indication: DISEASE RECURRENCE
     Dosage: Q21D
     Route: 041
     Dates: start: 201405, end: 201406
  2. BAKTAR (SULFAMETHOXAZOLE, TRIMETHOPRIM) TABLET [Concomitant]
     Active Substance: SULFAMETHOXAZOLE\TRIMETHOPRIM
  3. ADCETRIS [Suspect]
     Active Substance: BRENTUXIMAB VEDOTIN
     Indication: HODGKIN^S DISEASE
     Dosage: Q21D
     Route: 041
     Dates: start: 201405, end: 201406

REACTIONS (5)
  - Neutrophil count decreased [None]
  - Multi-organ failure [None]
  - Pyrexia [None]
  - Hodgkin^s disease [None]
  - Condition aggravated [None]

NARRATIVE: CASE EVENT DATE: 20140614
